FAERS Safety Report 23866578 (Version 2)
Quarter: 2024Q2

REPORT INFORMATION
  Report Type: Report from Study
  Country: SG (occurrence: None)
  Receive Date: 20240517
  Receipt Date: 20240521
  Transmission Date: 20240716
  Serious: Yes (Death, Other)
  Sender: FDA-Public Use
  Company Number: 2024A113970

PATIENT
  Sex: Male

DRUGS (1)
  1. TAGRISSO [Suspect]
     Active Substance: OSIMERTINIB
     Indication: Lung disorder
     Route: 048
     Dates: start: 20220511, end: 202311

REACTIONS (3)
  - Myocardial infarction [Fatal]
  - Urosepsis [Fatal]
  - Malignant neoplasm progression [Unknown]
